FAERS Safety Report 13346429 (Version 1)
Quarter: 2017Q1

REPORT INFORMATION
  Report Type: Spontaneous
  Country: US (occurrence: US)
  Receive Date: 20170317
  Receipt Date: 20170317
  Transmission Date: 20170428
  Serious: Yes (Hospitalization)
  Sender: FDA-Public Use
  Company Number: None

PATIENT
  Age: 12 Year
  Sex: Male
  Weight: 30.1 kg

DRUGS (5)
  1. ERWINIA ASPARAGINASE [Suspect]
     Active Substance: ASPARAGINASE ERWINIA CHRYSANTHEMI
     Dosage: 333000 UNIT
     Dates: end: 20170310
  2. THIOGUANINE (6-TG) [Suspect]
     Active Substance: THIOGUANINE ANHYDROUS
     Dates: end: 20170226
  3. CYTARABINE. [Suspect]
     Active Substance: CYTARABINE
     Dates: end: 20170223
  4. VINCRISTINE SULFATE. [Suspect]
     Active Substance: VINCRISTINE SULFATE
     Dates: end: 20170306
  5. CYCLOPHOSPHAMIDE. [Suspect]
     Active Substance: CYCLOPHOSPHAMIDE
     Dates: end: 20170213

REACTIONS (5)
  - Cellulitis [None]
  - Colitis [None]
  - Groin pain [None]
  - Malaise [None]
  - Febrile neutropenia [None]

NARRATIVE: CASE EVENT DATE: 20170307
